FAERS Safety Report 11095236 (Version 1)
Quarter: 2015Q2

REPORT INFORMATION
  Report Type: Spontaneous
  Country: US (occurrence: US)
  Receive Date: 20150506
  Receipt Date: 20150506
  Transmission Date: 20150821
  Serious: No
  Sender: FDA-Public Use
  Company Number: US-SA-2014SA128113

PATIENT
  Sex: Male

DRUGS (5)
  1. FLEXPEN [Concomitant]
     Active Substance: UNSPECIFIED INGREDIENT
     Dates: start: 201408
  2. FLEXPEN [Concomitant]
     Active Substance: UNSPECIFIED INGREDIENT
  3. LEVEMIR [Suspect]
     Active Substance: INSULIN DETEMIR
     Dosage: DOSE:10 UNIT(S)
     Route: 065
     Dates: start: 201408
  4. APIDRA [Suspect]
     Active Substance: INSULIN GLULISINE
     Indication: DIABETES MELLITUS
     Route: 065
     Dates: start: 201408
  5. LEVEMIR [Suspect]
     Active Substance: INSULIN DETEMIR
     Dosage: DOSE:40 UNIT(S)
     Route: 065

REACTIONS (1)
  - Blood glucose increased [Unknown]
